FAERS Safety Report 7141081-4 (Version None)
Quarter: 2010Q4

REPORT INFORMATION
  Report Type: 
  Country: None (occurrence: None)
  Receive Date: 20101122
  Receipt Date: 20101109
  Transmission Date: 20110411
  Serious: Yes (Hospitalization)
  Sender: FDA-Public Use
  Company Number: 752802

PATIENT
  Age: 9 Year
  Sex: Female
  Weight: 15.7852 kg

DRUGS (16)
  1. VINCRISTINE SULFATE [Suspect]
     Indication: NEOPLASM MALIGNANT
     Dosage: 1.9 MG MILLIGRAM(S) INTRAVENOUS
     Route: 042
     Dates: start: 20100217, end: 20100217
  2. APREPITANT [Suspect]
     Indication: PROPHYLAXIS
     Dosage: 89 MG MILLIGRAM(S) ORAL
     Route: 048
     Dates: start: 20100217, end: 20100217
  3. ONDANSETRON [Suspect]
     Indication: NAUSEA
     Dosage: 6 MG MILLIGRAM(S), INTRAVENOUS
     Route: 042
     Dates: start: 20100217, end: 20100217
  4. DOXORUBICIN HCL [Suspect]
     Indication: NEOPLASM MALIGNANT
     Dosage: 38 MG MILLIGRAM(S) INTRAVENOUS
     Route: 042
     Dates: start: 20100217, end: 20100218
  5. DACTINOMYCIN [Suspect]
     Indication: NEOPLASM MALIGNANT
     Dosage: 1.9 MG MILLIGRAM(S) INTRAVENOUS
     Route: 042
     Dates: start: 20100217, end: 20100217
  6. DEXAMETHASONE [Concomitant]
  7. IMPORTAL [Concomitant]
  8. SULFAMETHOXAZOLE [Concomitant]
  9. OMEPRAZOLE [Concomitant]
  10. RANTIDINE [Concomitant]
  11. IFOSFAMIDE [Concomitant]
  12. ONDANSETRON [Concomitant]
  13. PENICILLIN G /00000901/ [Concomitant]
  14. GARAMYCIN [Concomitant]
  15. FLUCONAZOLE [Concomitant]
  16. NEUPOGEN [Concomitant]

REACTIONS (9)
  - C-REACTIVE PROTEIN INCREASED [None]
  - DECREASED APPETITE [None]
  - FATIGUE [None]
  - FEBRILE NEUTROPENIA [None]
  - LEUKOPENIA [None]
  - NAUSEA [None]
  - ORAL PAIN [None]
  - PALLOR [None]
  - VOMITING [None]
